FAERS Safety Report 19501144 (Version 1)
Quarter: 2021Q3

REPORT INFORMATION
  Report Type: Report from Study
  Country: IN (occurrence: IN)
  Receive Date: 20210707
  Receipt Date: 20210707
  Transmission Date: 20211014
  Serious: Yes (Death, Other)
  Sender: FDA-Public Use
  Company Number: NVSC2021IN117558

PATIENT
  Age: 41 Year
  Sex: Female

DRUGS (2)
  1. KRYXANA [Suspect]
     Active Substance: RIBOCICLIB
     Indication: BREAST CANCER
     Dosage: 600 MG, QD
     Route: 065
     Dates: start: 202010, end: 202105
  2. KRYXANA [Suspect]
     Active Substance: RIBOCICLIB
     Dosage: 600 MG
     Route: 065
     Dates: start: 202106

REACTIONS (4)
  - Metastases to central nervous system [Unknown]
  - Fluid retention [Unknown]
  - Death [Fatal]
  - Somnolence [Unknown]

NARRATIVE: CASE EVENT DATE: 202105
